FAERS Safety Report 19483739 (Version 4)
Quarter: 2021Q3

REPORT INFORMATION
  Report Type: Spontaneous
  Country: US (occurrence: US)
  Receive Date: 20210701
  Receipt Date: 20210830
  Transmission Date: 20211014
  Serious: No
  Sender: FDA-Public Use
  Company Number: NVSC2021US141772

PATIENT

DRUGS (1)
  1. KESIMPTA [Suspect]
     Active Substance: OFATUMUMAB
     Indication: MULTIPLE SCLEROSIS
     Dosage: UNKNOWN
     Route: 065

REACTIONS (6)
  - Chills [Unknown]
  - Back pain [Unknown]
  - Pyrexia [Unknown]
  - Muscle atrophy [Unknown]
  - Muscle spasms [Unknown]
  - Musculoskeletal disorder [Unknown]
